FAERS Safety Report 6724870-7 (Version None)
Quarter: 2010Q2

REPORT INFORMATION
  Report Type: 
  Country: None (occurrence: None)
  Receive Date: 20100513
  Receipt Date: 20100513
  Transmission Date: 20101027
  Serious: Yes (Life-Threatening, Other)
  Sender: FDA-Public Use
  Company Number: None

PATIENT
  Age: 19 Year
  Sex: Male
  Weight: 63.6 kg

DRUGS (1)
  1. VYVANSE [Suspect]
     Indication: ATTENTION DEFICIT/HYPERACTIVITY DISORDER
     Dosage: 40 MG. 1/DAILY 3-5DAYS/WK ORAL
     Route: 048
     Dates: start: 20091201, end: 20100430

REACTIONS (5)
  - ANGER [None]
  - CRYING [None]
  - DEPRESSION [None]
  - EMOTIONAL DISTRESS [None]
  - FEAR [None]
